FAERS Safety Report 7409577-5 (Version None)
Quarter: 2011Q2

REPORT INFORMATION
  Report Type: 
  Country: None (occurrence: None)
  Receive Date: 20110412
  Receipt Date: 20110329
  Transmission Date: 20111010
  Serious: Yes (Hospitalization)
  Sender: FDA-Public Use
  Company Number: US-BAYER-2011-031392

PATIENT
  Age: 19 Year
  Sex: Female
  Weight: 62.132 kg

DRUGS (1)
  1. YASMIN [Suspect]
     Indication: PRODUCT USED FOR UNKNOWN INDICATION
     Dosage: UNK
     Dates: start: 20050601, end: 20060801

REACTIONS (3)
  - CHOLECYSTITIS [None]
  - BILIARY COLIC [None]
  - CHOLECYSTECTOMY [None]
